FAERS Safety Report 7461705-1 (Version None)
Quarter: 2011Q2

REPORT INFORMATION
  Report Type: 
  Country: None (occurrence: None)
  Receive Date: 20110506
  Receipt Date: 20110118
  Transmission Date: 20111010
  Serious: Yes (Other)
  Sender: FDA-Public Use
  Company Number: US-BAYER-201039669NA

PATIENT
  Age: 16 Year
  Sex: Female
  Weight: 80.272 kg

DRUGS (8)
  1. YAZ [Suspect]
     Indication: POLYCYSTIC OVARIES
     Dosage: UNK UNK, QD
     Route: 048
     Dates: start: 20061201, end: 20070701
  2. MOTRIN [Concomitant]
     Dosage: UNK UNK, PRN
     Dates: start: 20080901, end: 20080901
  3. YASMIN [Suspect]
     Dosage: UNK
     Dates: start: 20070701, end: 20080201
  4. DROSPIRENONE AND ETHINYL ESTRADIOL [Suspect]
     Dosage: UNK
     Dates: start: 20080201, end: 20081001
  5. VICODIN [Concomitant]
     Dosage: DAILY DOSE 500 MG
  6. PROZAC [Concomitant]
     Indication: OBSESSIVE-COMPULSIVE DISORDER
     Dosage: DAILY DOSE 40 MG
  7. GLUCOPHAGE [Concomitant]
     Indication: POLYCYSTIC OVARIES
  8. WELLBUTRIN [Concomitant]
     Dosage: DAILY DOSE 150 MG

REACTIONS (3)
  - CHOLELITHIASIS [None]
  - PAIN [None]
  - CHOLECYSTITIS [None]
